FAERS Safety Report 13267893 (Version 1)
Quarter: 2017Q1

REPORT INFORMATION
  Report Type: Spontaneous
  Country: US (occurrence: US)
  Receive Date: 20170224
  Receipt Date: 20170224
  Transmission Date: 20170428
  Serious: Yes (Hospitalization)
  Sender: FDA-Public Use
  Company Number: None

PATIENT
  Age: 49 Year
  Sex: Male
  Weight: 94 kg

DRUGS (1)
  1. TEMOZOLOMIDE. [Suspect]
     Active Substance: TEMOZOLOMIDE
     Dates: end: 20170128

REACTIONS (5)
  - Diastolic dysfunction [None]
  - Vascular occlusion [None]
  - Cerebral infarction [None]
  - Glycosylated haemoglobin increased [None]
  - Pericardial effusion [None]

NARRATIVE: CASE EVENT DATE: 20170209
